FAERS Safety Report 8181522-7 (Version None)
Quarter: 2012Q1

REPORT INFORMATION
  Report Type: 
  Country: None (occurrence: None)
  Receive Date: 20120126
  Receipt Date: 20111115
  Transmission Date: 20120608
  Serious: No
  Sender: FDA-Public Use
  Company Number: PHEH2011US009907

PATIENT
  Age: 62 Year
  Sex: Male
  Weight: 117.9 kg

DRUGS (10)
  1. GLIPIZIDE [Concomitant]
  2. MAGNESIUM OXIDE (MAGNESIUM OXIDE) [Concomitant]
  3. RAMIPRIL [Concomitant]
  4. MULTIVITAMIN [Concomitant]
  5. METOPROLOL TARTRATE [Concomitant]
  6. LEVEMIR [Concomitant]
  7. VICTOZA [Concomitant]
  8. LIPITOR [Concomitant]
  9. MULTI-VITAMINS [Concomitant]
  10. AFINITOR [Suspect]
     Dosage: 10 MG DAILY, ORAL
     Route: 048

REACTIONS (2)
  - CONSTIPATION [None]
  - FATIGUE [None]
